FAERS Safety Report 8123420-0 (Version None)
Quarter: 2012Q1

REPORT INFORMATION
  Report Type: 
  Country: None (occurrence: None)
  Receive Date: 20120208
  Receipt Date: 20120203
  Transmission Date: 20120608
  Serious: Yes (Death)
  Sender: FDA-Public Use
  Company Number: US-PFIZER INC-2012031986

PATIENT
  Sex: Male

DRUGS (5)
  1. IBUPROFEN (ADVIL) [Concomitant]
  2. ALLOPURINOL [Concomitant]
  3. LYRICA [Suspect]
     Dosage: 100 MG, UNK
  4. LEVOTHROID [Concomitant]
  5. ACETYLSALICYLIC ACID [Concomitant]

REACTIONS (1)
  - DEATH [None]
